FAERS Safety Report 8070618-6 (Version None)
Quarter: 2011Q4

REPORT INFORMATION
  Report Type: 
  Country: None (occurrence: None)
  Receive Date: 20111221
  Receipt Date: 20111005
  Transmission Date: 20120403
  Serious: Yes (Other)
  Sender: FDA-Public Use
  Company Number: PHEH2011US04917

PATIENT
  Age: 66 Year
  Sex: Female
  Weight: 54.4 kg

DRUGS (6)
  1. PRILOSE (OMEPRAZOLE) [Concomitant]
  2. EXJADE [Suspect]
     Indication: HAEMOCHROMATOSIS
     Dosage: 1000 MG, QD, ORAL
     Route: 048
     Dates: start: 20110801, end: 20110901
  3. FOLIC ACID [Concomitant]
  4. LASIX [Concomitant]
  5. BENAZEPRIL HYDROCHLORIDE [Concomitant]
  6. CARVEDIOL (CARVEDIOL) [Concomitant]

REACTIONS (7)
  - DIARRHOEA [None]
  - MUCOUS STOOLS [None]
  - BLOOD IRON DECREASED [None]
  - FATIGUE [None]
  - ASTHENIA [None]
  - HAEMATOCHEZIA [None]
  - ABDOMINAL PAIN [None]
